FAERS Safety Report 7797582-9 (Version None)
Quarter: 2011Q4

REPORT INFORMATION
  Report Type: 
  Country: None (occurrence: None)
  Receive Date: 20111005
  Receipt Date: 20110928
  Transmission Date: 20120403
  Serious: Yes (Disabling)
  Sender: FDA-Public Use
  Company Number: AU-NAPPMUNDI-GBR-2011-0008826

PATIENT

DRUGS (12)
  1. BETAHISTINE [Concomitant]
  2. PENICILLAMINE [Concomitant]
  3. PROPRANOLOL [Concomitant]
  4. PROTHIADEN [Concomitant]
  5. MORPHINE SULFATE [Suspect]
     Indication: PRODUCT USED FOR UNKNOWN INDICATION
  6. PREDNISOLONE [Concomitant]
  7. PIZOTIFEN [Concomitant]
  8. VITAMIN B6 [Concomitant]
  9. LISINOPRIL [Concomitant]
  10. VERAPAMIL [Concomitant]
  11. ACETAMINOPHEN W/ CODEINE [Suspect]
     Indication: PRODUCT USED FOR UNKNOWN INDICATION
     Dosage: 30 MG, UNK
     Route: 048
  12. VITAMIN D [Concomitant]

REACTIONS (2)
  - DEAFNESS [None]
  - MACROCYTOSIS [None]
